FAERS Safety Report 8374338 (Version 2)
Quarter: 2012Q4

REPORT INFORMATION
  Report Type: 
  Country: US (occurrence: US)
  Receive Date: 20120131
  Receipt Date: 20121018
  Transmission Date: 20130627
  Serious: Yes (Death)
  Sender: FDA-Public Use
  Company Number: PHEH2012US002359

PATIENT
  Age: 56 None
  Sex: Male
  Weight: 54 kg

DRUGS (2)
  1. ZOMETA [Suspect]
     Dosage: UNK UKN, UNK
  2. ZOMETA [Suspect]
     Dosage: UNK UKN, UNK
     Dates: start: 20111130

REACTIONS (1)
  - Renal cancer metastatic [Fatal]
